FAERS Safety Report 9562465 (Version 2)
Quarter: 2013Q3

REPORT INFORMATION
  Report Type: Spontaneous
  Country: JP (occurrence: JP)
  Receive Date: 20130927
  Receipt Date: 20130927
  Transmission Date: 20140515
  Serious: Yes (Hospitalization)
  Sender: FDA-Public Use
  Company Number: JP-GLAXOSMITHKLINE-B0924412A

PATIENT
  Sex: Female

DRUGS (1)
  1. ZANAMIVIR [Suspect]
     Indication: INFLUENZA
     Dosage: 10MG TWICE PER DAY
     Route: 055

REACTIONS (8)
  - Shock [Recovering/Resolving]
  - Loss of consciousness [Unknown]
  - Pericardial effusion [Unknown]
  - Dyspnoea [Unknown]
  - Discomfort [Unknown]
  - Pallor [Unknown]
  - Pulse absent [Unknown]
  - Peripheral coldness [Unknown]
